FAERS Safety Report 16289535 (Version 1)
Quarter: 2019Q2

REPORT INFORMATION
  Report Type: Spontaneous
  Country: US (occurrence: US)
  Receive Date: 20190404
  Receipt Date: 20190404
  Transmission Date: 20190711
  Serious: Yes (Other)
  Sender: FDA-Public Use
  Company Number: None

PATIENT
  Age: 58 Year
  Sex: Female

DRUGS (1)
  1. SIMPONI [Suspect]
     Active Substance: GOLIMUMAB
     Indication: ANKYLOSING SPONDYLITIS
     Dosage: OTHER
     Route: 058

REACTIONS (4)
  - Fatigue [None]
  - Headache [None]
  - Hot flush [None]
  - Burning sensation [None]

NARRATIVE: CASE EVENT DATE: 20190304
